FAERS Safety Report 12894282 (Version 2)
Quarter: 2016Q4

REPORT INFORMATION
  Report Type: Spontaneous
  Country: JP (occurrence: JP)
  Receive Date: 20161028
  Receipt Date: 20161110
  Transmission Date: 20170207
  Serious: Yes (Other)
  Sender: FDA-Public Use
  Company Number: JP-PFIZER INC-2016495584

PATIENT
  Age: 78 Year
  Sex: Male
  Weight: 43 kg

DRUGS (10)
  1. OPALMON [Concomitant]
     Active Substance: LIMAPROST
     Dosage: 5 ?G, THRICE DAILY, AFTER EACH MEAL
     Route: 065
  2. BAYASPIRIN [Concomitant]
     Active Substance: ASPIRIN
     Dosage: 100 MG, ONCE DAILY, AFTER BREAKFAST
     Route: 065
  3. MAGLAX [Concomitant]
     Active Substance: MAGNESIUM OXIDE
     Dosage: 250 MG, THRICE DAILY, AFTER EACH MEAL
     Route: 048
  4. ATORVASTATIN [Suspect]
     Active Substance: ATORVASTATIN
     Indication: DYSLIPIDAEMIA
     Dosage: 5 MG, ONCE DAILY, AFTER BREAKFAST
     Route: 065
  5. ARICEPT [Concomitant]
     Active Substance: DONEPEZIL HYDROCHLORIDE
     Indication: DEMENTIA
     Dosage: 5 MG, 1X/DAY
     Route: 065
  6. RISPERDAL [Concomitant]
     Active Substance: RISPERIDONE
     Dosage: 1 MG, 1X/DAY (AT BEDTIME)
     Route: 065
  7. MAGLAX [Concomitant]
     Active Substance: MAGNESIUM OXIDE
     Dosage: 500 MG, 3X/DAY
     Route: 048
  8. TETRAMIDE [Concomitant]
     Active Substance: MIANSERIN
     Dosage: 30 MG, 1X/DAY (AT BEDTIME)
     Route: 065
  9. ALEVIATIN /00017401/ [Concomitant]
     Active Substance: PHENYTOIN SODIUM
     Dosage: 100 MG, TWICE DAILY, AFTER BREAKFAST AND DINNER
     Route: 065
  10. SENNOSIDE /00571901/ [Concomitant]
     Active Substance: SENNOSIDES A AND B
     Dosage: 24 MG, ONCE DAILY, AFTER DINNER
     Route: 065

REACTIONS (1)
  - Chronic kidney disease [Unknown]
